FAERS Safety Report 4536353-3 (Version None)
Quarter: 2004Q4

REPORT INFORMATION
  Report Type: 
  Country: None (occurrence: None)
  Receive Date: 20041223
  Receipt Date: 20040816
  Transmission Date: 20050328
  Serious: No
  Sender: FDA-Public Use
  Company Number: US-GLAXOSMITHKLINE-A0522237A

PATIENT
  Age: 78 Year
  Sex: Male

DRUGS (7)
  1. FLONASE [Suspect]
     Dosage: 50MCG TWICE PER DAY
     Route: 045
     Dates: start: 20040601
  2. CHLORPHENIRAMINE MALEATE [Concomitant]
  3. GLIPIZIDE [Concomitant]
  4. FUROSEMIDE [Concomitant]
  5. POTASSIUM CHLORIDE [Concomitant]
  6. DIGOXIN [Concomitant]
  7. ANAPRIL [Concomitant]

REACTIONS (1)
  - DRUG INEFFECTIVE [None]
